FAERS Safety Report 6287779-1 (Version None)
Quarter: 2009Q3

REPORT INFORMATION
  Report Type: 
  Country: None (occurrence: None)
  Receive Date: 20090729
  Receipt Date: 20070703
  Transmission Date: 20100115
  Serious: Yes (Death, Other)
  Sender: FDA-Public Use
  Company Number: US-ASTRAZENECA-2006UW24280

PATIENT
  Age: 31426 Day
  Sex: Female
  Weight: 45.4 kg

DRUGS (15)
  1. SEROQUEL [Suspect]
     Indication: DEPRESSION
     Route: 048
     Dates: start: 20020524
  2. SEROQUEL [Suspect]
     Route: 048
  3. ZYPREXA [Concomitant]
     Route: 048
     Dates: start: 19980214
  4. ZYPREXA [Concomitant]
  5. HYDROCHLOROTHIAZIDE [Concomitant]
     Route: 048
     Dates: start: 19980214
  6. LOTREL [Concomitant]
     Dosage: AMLODIPINE (5 MG), BENAZEPRIL (10 MG), CAPSULE, DAILY
     Route: 048
     Dates: start: 19980214
  7. TRIMETHOPRIM [Concomitant]
     Route: 048
     Dates: start: 20040412
  8. ARICEPT [Concomitant]
     Indication: DEMENTIA ALZHEIMER'S TYPE
     Route: 048
     Dates: start: 20040412
  9. VASOTEC [Concomitant]
     Route: 048
     Dates: start: 20040927
  10. LOMOTIL [Concomitant]
     Dosage: TWO EVERY EIGHT HOUR
     Route: 048
     Dates: start: 20040927
  11. COUMADIN [Concomitant]
     Indication: ANTICOAGULANT THERAPY
     Route: 048
     Dates: start: 20020521
  12. REMERON [Concomitant]
     Route: 048
     Dates: start: 20020521
  13. PROVIGIL [Concomitant]
     Route: 048
     Dates: start: 20041207
  14. TOPROL-XL [Concomitant]
     Route: 048
     Dates: start: 20041207
  15. TEMAZEPAM [Concomitant]
     Indication: INSOMNIA
     Route: 048
     Dates: start: 19980226

REACTIONS (3)
  - ACUTE MYOCARDIAL INFARCTION [None]
  - CORONARY ARTERY DISEASE [None]
  - PANCREATITIS [None]
